FAERS Safety Report 9485798 (Version 2)
Quarter: 2013Q4

REPORT INFORMATION
  Report Type: Spontaneous
  Country: US (occurrence: US)
  Receive Date: 20130829
  Receipt Date: 20131015
  Transmission Date: 20140711
  Serious: Yes (Other)
  Sender: FDA-Public Use
  Company Number: US-TEVA-428832USA

PATIENT
  Age: 17 Year
  Sex: Female
  Weight: 89.89 kg

DRUGS (2)
  1. PARAGARD 380A [Suspect]
     Indication: CONTRACEPTION
     Route: 015
     Dates: start: 20130111, end: 20130809
  2. BYSTOLIC [Concomitant]
     Indication: HYPERTENSION

REACTIONS (3)
  - Device dislocation [Recovered/Resolved]
  - Menstruation delayed [Recovered/Resolved]
  - Menorrhagia [Unknown]
